FAERS Safety Report 4546146-9 (Version None)
Quarter: 2005Q1

REPORT INFORMATION
  Report Type: 
  Country: None (occurrence: None)
  Receive Date: 20050103
  Receipt Date: 20041221
  Transmission Date: 20050727
  Serious: Yes (Hospitalization)
  Sender: FDA-Public Use
  Company Number: 200416179BCC

PATIENT
  Age: 61 Year
  Sex: Male
  Weight: 111.1313 kg

DRUGS (1)
  1. ALEVE [Suspect]
     Indication: PAIN
     Dosage: 220 MG, TID, ORAL
     Route: 048
     Dates: start: 20041101, end: 20041208

REACTIONS (1)
  - HEART RATE INCREASED [None]
